FAERS Safety Report 19618137 (Version 1)
Quarter: 2021Q3

REPORT INFORMATION
  Report Type: Spontaneous
  Country: US (occurrence: US)
  Receive Date: 20210727
  Receipt Date: 20210727
  Transmission Date: 20211014
  Serious: No
  Sender: FDA-Public Use
  Company Number: US-ROCHE-2708467

PATIENT
  Sex: Female

DRUGS (3)
  1. TUKYSA [Suspect]
     Active Substance: TUCATINIB
     Indication: BREAST CANCER FEMALE
     Dosage: THERAPY HOLD ON 13/DEC/2020
     Route: 065
  2. XELODA [Suspect]
     Active Substance: CAPECITABINE
     Indication: PRODUCT USED FOR UNKNOWN INDICATION
     Dosage: THERAPY STATUS: DOSE WAS DECREASED
     Route: 065
  3. XELODA [Suspect]
     Active Substance: CAPECITABINE
     Dosage: THERAPY STATUS: ON HOLD
     Route: 065

REACTIONS (13)
  - Stress [Unknown]
  - Pharyngeal disorder [Unknown]
  - Feeling abnormal [Unknown]
  - Dehydration [Unknown]
  - Decreased appetite [Unknown]
  - Neuropathy peripheral [Unknown]
  - Hepatic enzyme increased [Unknown]
  - Diarrhoea [Unknown]
  - Oropharyngeal pain [Unknown]
  - Gastrooesophageal reflux disease [Unknown]
  - Liver function test increased [Unknown]
  - Fatigue [Unknown]
  - Rash [Unknown]
